FAERS Safety Report 9133608 (Version 1)
Quarter: 2013Q1

REPORT INFORMATION
  Report Type: Other
  Country: IN (occurrence: IN)
  Receive Date: 20130123
  Receipt Date: 20130123
  Transmission Date: 20140127
  Serious: Yes (Other)
  Sender: FDA-Public Use
  Company Number: IN-RB-048775-13

PATIENT
  Sex: Male

DRUGS (2)
  1. ADDNOK-N [Suspect]
     Indication: DRUG DEPENDENCE
     Dosage: DOSING DETAILS UNKNOWN
     Route: 060
  2. CARBAMAZEPINE [Suspect]
     Indication: EPILEPSY
     Dosage: 400 MG/DAILY, IRREGULARE INTAKE
     Route: 065

REACTIONS (2)
  - Epilepsy [Unknown]
  - Condition aggravated [Unknown]
